FAERS Safety Report 8324856-5 (Version None)
Quarter: 2012Q2

REPORT INFORMATION
  Report Type: 
  Country: None (occurrence: None)
  Receive Date: 20120427
  Receipt Date: 20120418
  Transmission Date: 20120825
  Serious: Yes (Death)
  Sender: FDA-Public Use
  Company Number: ADR-2012-00765

PATIENT
  Sex: Male

DRUGS (2)
  1. LIORESAL [Suspect]
     Dosage: 68.3 MCG/DAY
  2. LIORESAL [Concomitant]

REACTIONS (2)
  - MYOCARDIAL INFARCTION [None]
  - POST PROCEDURAL COMPLICATION [None]
